FAERS Safety Report 7013795 (Version 6)
Quarter: 2015Q2

REPORT INFORMATION
  Report Type: Report from Study
  Country: US (occurrence: US)
  Receive Date: 20050606
  Receipt Date: 20150518
  Transmission Date: 20150821
  Serious: Yes (Hospitalization)
  Sender: FDA-Public Use
  Company Number: US-BIOGENIDEC-2005BI009993

PATIENT
  Age: 56 Year
  Sex: Female
  Weight: 74 kg

DRUGS (3)
  1. VIOXX [Concomitant]
     Active Substance: ROFECOXIB
  2. AVONEX [Suspect]
     Active Substance: INTERFERON BETA-1A
     Indication: MULTIPLE SCLEROSIS
     Route: 030
     Dates: start: 2003
  3. AVONEX [Suspect]
     Active Substance: INTERFERON BETA-1A
     Indication: MULTIPLE SCLEROSIS
     Route: 030
     Dates: start: 20000712, end: 2003

REACTIONS (4)
  - Fall [Recovered/Resolved]
  - Atrial fibrillation [Not Recovered/Not Resolved]
  - Cardiomegaly [Recovered/Resolved]
  - Osteonecrosis [Not Recovered/Not Resolved]

NARRATIVE: CASE EVENT DATE: 200407
